FAERS Safety Report 6180805-X (Version None)
Quarter: 2009Q2

REPORT INFORMATION
  Report Type: 
  Country: None (occurrence: None)
  Receive Date: 20090506
  Receipt Date: 20090424
  Transmission Date: 20091009
  Serious: Yes (Life-Threatening)
  Sender: FDA-Public Use
  Company Number: IT-PFIZER INC-2009180400

PATIENT

DRUGS (1)
  1. UNASYN [Suspect]
     Indication: BRONCHOPNEUMONIA
     Dosage: FREQUENCY: CYCLIC,
     Route: 030
     Dates: start: 20081124, end: 20081124

REACTIONS (6)
  - ANAPHYLACTIC SHOCK [None]
  - DYSPNOEA [None]
  - HYPERHIDROSIS [None]
  - HYPOTENSION [None]
  - LOSS OF CONSCIOUSNESS [None]
  - PRURITUS [None]
